FAERS Safety Report 15283318 (Version 2)
Quarter: 2018Q3

REPORT INFORMATION
  Report Type: Report from Study
  Country: KR (occurrence: KR)
  Receive Date: 20180816
  Receipt Date: 20180903
  Transmission Date: 20181010
  Serious: Yes (Hospitalization, Other)
  Sender: FDA-Public Use
  Company Number: KR-B.I. PHARMACEUTICALS,INC./RIDGEFIELD-2018-BI-040487

PATIENT
  Age: 59 Year
  Sex: Male
  Weight: 68 kg

DRUGS (19)
  1. Q PAM [Concomitant]
     Indication: METASTASES TO CENTRAL NERVOUS SYSTEM
     Route: 065
     Dates: start: 20170504
  2. SEROQUEL [Concomitant]
     Active Substance: QUETIAPINE FUMARATE
     Route: 065
     Dates: start: 20170615, end: 20170620
  3. HARNAL [Concomitant]
     Active Substance: TAMSULOSIN HYDROCHLORIDE
     Indication: DYSURIA
     Route: 065
     Dates: start: 20170616, end: 20170905
  4. TRAZODONE [Concomitant]
     Active Substance: TRAZODONE HYDROCHLORIDE
     Indication: METASTASES TO CENTRAL NERVOUS SYSTEM
     Route: 065
     Dates: start: 20170620, end: 20170622
  5. TRAZODONE [Concomitant]
     Active Substance: TRAZODONE HYDROCHLORIDE
     Route: 065
     Dates: start: 20170623, end: 20170828
  6. RISPERDAL [Concomitant]
     Active Substance: RISPERIDONE
     Indication: METASTASES TO CENTRAL NERVOUS SYSTEM
     Route: 065
     Dates: start: 20170615, end: 20170828
  7. SEROQUEL [Concomitant]
     Active Substance: QUETIAPINE FUMARATE
     Indication: METASTASES TO CENTRAL NERVOUS SYSTEM
     Route: 065
     Dates: start: 20170607, end: 20170614
  8. RISPERDAL [Concomitant]
     Active Substance: RISPERIDONE
     Route: 065
     Dates: start: 20171127
  9. ANTIBIO [Concomitant]
     Indication: PROPHYLAXIS AGAINST DIARRHOEA
     Route: 065
     Dates: start: 20170706, end: 20171004
  10. PANTOLINE [Concomitant]
     Active Substance: PANTOPRAZOLE SODIUM
     Indication: PROPHYLAXIS AGAINST GASTROINTESTINAL ULCER
     Route: 065
     Dates: start: 20170828, end: 20170904
  11. GILOTRIF [Suspect]
     Active Substance: AFATINIB
     Route: 048
     Dates: start: 20170909
  12. SEROQUEL [Concomitant]
     Active Substance: QUETIAPINE FUMARATE
     Route: 065
     Dates: start: 20170621, end: 20170828
  13. PARAMACET [Concomitant]
     Active Substance: ACETAMINOPHEN\TRAMADOL
     Indication: CANCER PAIN
     Route: 065
     Dates: start: 20170616, end: 20180115
  14. HINECHOL [Concomitant]
     Indication: DYSURIA
     Route: 065
     Dates: start: 20170621, end: 20170905
  15. DIGOSIN [Concomitant]
     Active Substance: DIGOXIN
     Indication: CONGESTIVE CARDIOMYOPATHY
     Route: 065
     Dates: start: 20170830
  16. PLAVIX [Concomitant]
     Active Substance: CLOPIDOGREL BISULFATE
     Indication: CONGESTIVE CARDIOMYOPATHY
     Route: 065
     Dates: start: 20170830
  17. GILOTRIF [Suspect]
     Active Substance: AFATINIB
     Indication: NON-SMALL CELL LUNG CANCER
     Route: 048
     Dates: start: 20170601, end: 20170828
  18. LYRICA [Concomitant]
     Active Substance: PREGABALIN
     Indication: PAIN IN EXTREMITY
     Route: 065
     Dates: start: 20170531
  19. DICAMAX?D [Concomitant]
     Active Substance: CALCIUM CARBONATE\CHOLECALCIFEROL
     Indication: NON-SMALL CELL LUNG CANCER
     Route: 065
     Dates: start: 20170622

REACTIONS (3)
  - Pneumonia [Recovered/Resolved]
  - Colitis [Recovered/Resolved]
  - Malignant neoplasm progression [Not Recovered/Not Resolved]

NARRATIVE: CASE EVENT DATE: 20170828
